FAERS Safety Report 10080626 (Version 2)
Quarter: 2014Q2

REPORT INFORMATION
  Report Type: Spontaneous
  Country: US (occurrence: US)
  Receive Date: 20140416
  Receipt Date: 20140505
  Transmission Date: 20141212
  Serious: Yes (Other)
  Sender: FDA-Public Use
  Company Number: US-BEH-2014041724

PATIENT
  Sex: Female

DRUGS (1)
  1. BERINERT [Suspect]

REACTIONS (6)
  - Abdominal distension [Unknown]
  - Vomiting [Unknown]
  - Rash generalised [Unknown]
  - Abdominal pain upper [Unknown]
  - Fatigue [Unknown]
  - Decreased appetite [Unknown]
